FAERS Safety Report 24938122 (Version 2)
Quarter: 2025Q1

REPORT INFORMATION
  Report Type: Spontaneous
  Country: US (occurrence: US)
  Receive Date: 20250206
  Receipt Date: 20250207
  Transmission Date: 20250408
  Serious: Yes (Life-Threatening, Hospitalization, Other)
  Sender: JOHNSON AND JOHNSON
  Company Number: US-JNJFOC-20250169955

PATIENT
  Age: 70 Year
  Sex: Female

DRUGS (1)
  1. CARVYKTI [Suspect]
     Active Substance: CILTACABTAGENE AUTOLEUCEL
     Indication: Plasma cell myeloma
     Dates: start: 20240529

REACTIONS (6)
  - T-cell lymphoma [Not Recovered/Not Resolved]
  - Weight decreased [Unknown]
  - Cytomegalovirus viraemia [Unknown]
  - Oesophageal candidiasis [Unknown]
  - Enteritis [Unknown]
  - Electrolyte imbalance [Unknown]

NARRATIVE: CASE EVENT DATE: 20250121
